FAERS Safety Report 10129671 (Version 2)
Quarter: 2014Q2

REPORT INFORMATION
  Report Type: Spontaneous
  Country: US (occurrence: US)
  Receive Date: 20140428
  Receipt Date: 20140512
  Transmission Date: 20141212
  Serious: Yes (Other)
  Sender: FDA-Public Use
  Company Number: US-SA-2014SA054356

PATIENT
  Age: 18 Year
  Sex: Male

DRUGS (7)
  1. FABRAZYME [Suspect]
     Indication: FABRY^S DISEASE
     Route: 042
     Dates: start: 20130408
  2. ACETAMINOPHEN [Concomitant]
     Indication: PREMEDICATION
  3. NEURONTIN [Concomitant]
     Indication: NEURALGIA
  4. IBUPROFEN [Concomitant]
     Indication: PREMEDICATION
  5. TYLENOL [Concomitant]
     Indication: PREMEDICATION
  6. BENADRYL [Concomitant]
     Indication: PREMEDICATION
  7. PREDNISONE [Concomitant]
     Indication: PREMEDICATION

REACTIONS (1)
  - Upper limb fracture [Unknown]
